FAERS Safety Report 7462244-4 (Version None)
Quarter: 2011Q2

REPORT INFORMATION
  Report Type: 
  Country: None (occurrence: None)
  Receive Date: 20110506
  Receipt Date: 20110503
  Transmission Date: 20111010
  Serious: Yes (Life-Threatening)
  Sender: FDA-Public Use
  Company Number: DK-PFIZER INC-2011095389

PATIENT
  Age: 70 Year
  Sex: Female
  Weight: 70 kg

DRUGS (4)
  1. ZYVOX [Suspect]
     Indication: INFECTION
  2. CIPROXIN [Concomitant]
     Indication: HYPERTENSION
     Dates: start: 20110129, end: 20110317
  3. ZYVOX [Suspect]
     Indication: HYPERTENSION
     Dosage: UNK
     Route: 042
     Dates: start: 20110211, end: 20110312
  4. MEROPENEM [Concomitant]
     Indication: KNEE ARTHROPLASTY
     Dates: start: 20110128, end: 20110317

REACTIONS (3)
  - BLOOD LACTIC ACID INCREASED [None]
  - CARDIAC FAILURE [None]
  - HYPOTENSION [None]
